FAERS Safety Report 8843255 (Version 3)
Quarter: 2012Q4

REPORT INFORMATION
  Report Type: 
  Country: IL (occurrence: IL)
  Receive Date: 20121016
  Receipt Date: 20121213
  Transmission Date: 20130627
  Serious: Yes (Hospitalization)
  Sender: FDA-Public Use
  Company Number: PHHY2012IL086290

PATIENT
  Age: 37 Year
  Sex: Female

DRUGS (1)
  1. GILENYA [Suspect]
     Indication: MULTIPLE SCLEROSIS
     Dosage: 0.5 mg, QD
     Route: 048
     Dates: start: 20120913

REACTIONS (5)
  - Dysstasia [Unknown]
  - Malaise [Unknown]
  - Muscular weakness [Unknown]
  - Infection [Recovered/Resolved]
  - Vulvovaginal mycotic infection [Recovered/Resolved]
